FAERS Safety Report 6289695-8 (Version None)
Quarter: 2009Q3

REPORT INFORMATION
  Report Type: 
  Country: None (occurrence: None)
  Receive Date: 20090730
  Receipt Date: 20080617
  Transmission Date: 20100115
  Serious: No
  Sender: FDA-Public Use
  Company Number: US-BRISTOL-MYERS SQUIBB COMPANY-14231781

PATIENT
  Age: 88 Year
  Sex: Male
  Weight: 78 kg

DRUGS (3)
  1. COUMADIN [Suspect]
     Indication: KNEE ARTHROPLASTY
  2. TESTOSTERONE [Concomitant]
  3. VIAGRA [Concomitant]

REACTIONS (2)
  - ALOPECIA [None]
  - AMNESIA [None]
